FAERS Safety Report 8510484-5 (Version None)
Quarter: 2012Q3

REPORT INFORMATION
  Report Type: 
  Country: None (occurrence: None)
  Receive Date: 20120715
  Receipt Date: 20120705
  Transmission Date: 20120928
  Serious: No
  Sender: FDA-Public Use
  Company Number: US-009507513-1207USA002187

PATIENT

DRUGS (3)
  1. TELAPREVIR [Suspect]
     Indication: HEPATITIS C
     Dosage: UNK
     Dates: end: 20120623
  2. RIBASPHERE [Suspect]
     Indication: HEPATITIS C
     Dosage: UNK
  3. PEG-INTRON [Suspect]
     Indication: HEPATITIS C
     Dosage: UNK, QW
     Route: 058
     Dates: start: 20120604, end: 20120623

REACTIONS (6)
  - ANXIETY [None]
  - THIRST [None]
  - CONFUSIONAL STATE [None]
  - DISORIENTATION [None]
  - DYSPHAGIA [None]
  - DISTURBANCE IN ATTENTION [None]
